FAERS Safety Report 19807264 (Version 1)
Quarter: 2021Q3

REPORT INFORMATION
  Report Type: Spontaneous
  Country: US (occurrence: US)
  Receive Date: 20210909
  Receipt Date: 20210909
  Transmission Date: 20211014
  Serious: No
  Sender: FDA-Public Use
  Company Number: US-REGENERON PHARMACEUTICALS, INC.-2021-11402

PATIENT

DRUGS (2)
  1. PRALUENT [Suspect]
     Active Substance: ALIROCUMAB
     Indication: HYPERCHOLESTEROLAEMIA
     Dosage: 75 MG/ML, Q2W
     Route: 058
     Dates: start: 20201214
  2. DUPIXENT [Concomitant]
     Active Substance: DUPILUMAB
     Indication: PRODUCT USED FOR UNKNOWN INDICATION

REACTIONS (4)
  - Swelling face [Unknown]
  - Rash [Unknown]
  - Taste disorder [Unknown]
  - Swollen tongue [Unknown]

NARRATIVE: CASE EVENT DATE: 20201225
